FAERS Safety Report 8851666 (Version 1)
Quarter: 2012Q4

REPORT INFORMATION
  Report Type: 
  Country: US (occurrence: US)
  Receive Date: 20121022
  Receipt Date: 20121022
  Transmission Date: 20130627
  Serious: No
  Sender: FDA-Public Use
  Company Number: US-009507513-1210USA007633

PATIENT
  Age: 59 Year
  Sex: Male

DRUGS (1)
  1. EMEND [Suspect]
     Indication: PROPHYLAXIS OF NAUSEA AND VOMITING
     Dosage: 150 mg, UNK
     Route: 042

REACTIONS (4)
  - Heart rate increased [Recovering/Resolving]
  - Hypertension [Recovering/Resolving]
  - Blood pressure increased [Recovering/Resolving]
  - Flushing [Recovering/Resolving]
